FAERS Safety Report 4694221-0 (Version None)
Quarter: 2005Q2

REPORT INFORMATION
  Report Type: 
  Country: None (occurrence: None)
  Receive Date: 20050616
  Receipt Date: 20050616
  Transmission Date: 20051028
  Serious: Yes (Death)
  Sender: FDA-Public Use
  Company Number: None

PATIENT
  Age: 38 Year
  Sex: Female
  Weight: 81.6475 kg

DRUGS (2)
  1. TRILEPTAL [Suspect]
     Indication: BIPOLAR DISORDER
     Dosage: 600 MG BID
     Dates: start: 20030101, end: 20040101
  2. TOPAMAX [Suspect]
     Indication: BIPOLAR DISORDER
     Dosage: 25 MG QID
     Dates: start: 20031101, end: 20040101

REACTIONS (16)
  - COMPLETED SUICIDE [None]
  - CONDITION AGGRAVATED [None]
  - DEPRESSION [None]
  - DIZZINESS [None]
  - DRUG INEFFECTIVE [None]
  - FATIGUE [None]
  - GAIT DISTURBANCE [None]
  - HALLUCINATION [None]
  - HEADACHE [None]
  - INSOMNIA [None]
  - MOOD ALTERED [None]
  - PARANOIA [None]
  - SPEECH DISORDER [None]
  - SWOLLEN TONGUE [None]
  - TREMOR [None]
  - VISUAL DISTURBANCE [None]
